FAERS Safety Report 10795196 (Version 1)
Quarter: 2015Q1

REPORT INFORMATION
  Report Type: Spontaneous
  Country: US (occurrence: US)
  Receive Date: 20150214
  Receipt Date: 20150214
  Transmission Date: 20150721
  Serious: No
  Sender: FDA-Public Use
  Company Number: US-GLAXOSMITHKLINE-A1073769A

PATIENT

DRUGS (3)
  1. VENTOLIN [Suspect]
     Active Substance: ALBUTEROL SULFATE
     Indication: UPPER RESPIRATORY TRACT INFECTION
  2. VENTOLIN [Suspect]
     Active Substance: ALBUTEROL SULFATE
     Indication: COUGH
     Dosage: 90 MCG. UNKNOWN DOSING.
     Route: 055
     Dates: start: 20140303
  3. VENTOLIN [Suspect]
     Active Substance: ALBUTEROL SULFATE
     Indication: WHEEZING

REACTIONS (5)
  - Product quality issue [Unknown]
  - Wheezing [Unknown]
  - Drug ineffective [Unknown]
  - Upper respiratory tract infection [Unknown]
  - Cough [Unknown]

NARRATIVE: CASE EVENT DATE: 20140303
